FAERS Safety Report 11581443 (Version 1)
Quarter: 2015Q4

REPORT INFORMATION
  Report Type: Spontaneous
  Country: US (occurrence: US)
  Receive Date: 20151001
  Receipt Date: 20151001
  Transmission Date: 20160304
  Serious: No
  Sender: FDA-Public Use
  Company Number: US-ROCHE-664492

PATIENT
  Age: 55 Year
  Sex: Female

DRUGS (2)
  1. PEGASYS [Suspect]
     Active Substance: PEGINTERFERON ALFA-2A
     Indication: HEPATITIS C
     Dosage: FORM: PRE-FILLED SYRINGE
     Route: 065
  2. COPEGUS [Suspect]
     Active Substance: RIBAVIRIN
     Indication: HEPATITIS C
     Dosage: DIVIDED DOSES
     Route: 065

REACTIONS (10)
  - Rash pruritic [Unknown]
  - Vomiting [Unknown]
  - Pain [Unknown]
  - Injection site haemorrhage [Unknown]
  - Urinary tract infection [Unknown]
  - Retching [Unknown]
  - Pyrexia [Unknown]
  - Bladder discomfort [Unknown]
  - Vision blurred [Unknown]
  - Arthropathy [Unknown]

NARRATIVE: CASE EVENT DATE: 20091016
